FAERS Safety Report 5934476-5 (Version None)
Quarter: 2008Q4

REPORT INFORMATION
  Report Type: 
  Country: None (occurrence: None)
  Receive Date: 20081029
  Receipt Date: 20081017
  Transmission Date: 20090506
  Serious: Yes (Other)
  Sender: FDA-Public Use
  Company Number: US-PFIZER INC-2008056851

PATIENT
  Sex: Female
  Weight: 86.2 kg

DRUGS (9)
  1. LYRICA [Suspect]
     Indication: NEUROPATHY PERIPHERAL
  2. DESVENLAFAXINE [Suspect]
     Indication: NEUROPATHY PERIPHERAL
     Dates: start: 20081001
  3. ADVAIR DISKUS 100/50 [Concomitant]
  4. ALBUTEROL [Concomitant]
  5. CELEBREX [Concomitant]
  6. NEXIUM [Concomitant]
  7. ESTROGENIC SUBSTANCE [Concomitant]
  8. DURAGESIC-100 [Concomitant]
  9. NORCO [Concomitant]

REACTIONS (6)
  - ANGIOEDEMA [None]
  - ASTHMA [None]
  - DYSPNOEA [None]
  - GAIT DISTURBANCE [None]
  - PITTING OEDEMA [None]
  - SOMNOLENCE [None]
